FAERS Safety Report 16255525 (Version 1)
Quarter: 2019Q2

REPORT INFORMATION
  Report Type: Report from Study
  Country: FR (occurrence: FR)
  Receive Date: 20190430
  Receipt Date: 20190430
  Transmission Date: 20190711
  Serious: Yes (Life-Threatening, Hospitalization)
  Sender: FDA-Public Use
  Company Number: FR-MYLANLABS-2019M1039857

PATIENT
  Age: 34 Year
  Sex: Male
  Weight: 63 kg

DRUGS (2)
  1. NEORAL [Suspect]
     Active Substance: CYCLOSPORINE
     Indication: PRODUCT USED FOR UNKNOWN INDICATION
     Dosage: 160 MG, UNK
     Route: 048
  2. PREDNISONE. [Suspect]
     Active Substance: PREDNISONE
     Indication: GRAFT VERSUS HOST DISEASE
     Dosage: 60 MG, QD
     Route: 048
     Dates: start: 20180713

REACTIONS (2)
  - Septic shock [Not Recovered/Not Resolved]
  - Soft tissue necrosis [Not Recovered/Not Resolved]

NARRATIVE: CASE EVENT DATE: 20180821
